FAERS Safety Report 11983654 (Version 3)
Quarter: 2016Q1

REPORT INFORMATION
  Report Type: Spontaneous
  Country: CH (occurrence: FI)
  Receive Date: 20160201
  Receipt Date: 20160304
  Transmission Date: 20160526
  Serious: Yes (Hospitalization)
  Sender: FDA-Public Use
  Company Number: CH-LPDUSPRD-20160084

PATIENT
  Age: 41 Year
  Sex: Female

DRUGS (1)
  1. FERINJECT [Suspect]
     Active Substance: FERRIC CARBOXYMALTOSE
     Dosage: 500 MG IN 100 ML 0.9% NACL
     Route: 041
     Dates: start: 20160108

REACTIONS (2)
  - Cellulitis [Not Recovered/Not Resolved]
  - Infusion site reaction [Not Recovered/Not Resolved]

NARRATIVE: CASE EVENT DATE: 201601
